FAERS Safety Report 8100008-9 (Version None)
Quarter: 2012Q1

REPORT INFORMATION
  Report Type: 
  Country: None (occurrence: None)
  Receive Date: 20120129
  Receipt Date: 20111117
  Transmission Date: 20120608
  Serious: No
  Sender: FDA-Public Use
  Company Number: US-ABBOTT-11P-163-0875812-00

PATIENT
  Sex: Female
  Weight: 48.124 kg

DRUGS (23)
  1. PLAQUENIL [Concomitant]
     Indication: RHEUMATOID ARTHRITIS
  2. FOSAMAX [Concomitant]
     Indication: BONE DISORDER
  3. ASMANEX TWISTHALER [Concomitant]
     Indication: EMPHYSEMA
  4. CALCIUM WITH VITAMIN D [Concomitant]
     Indication: MINERAL SUPPLEMENTATION
  5. CELEXA [Concomitant]
     Indication: DEPRESSION
  6. SEREVENT [Concomitant]
     Indication: CHRONIC OBSTRUCTIVE PULMONARY DISEASE
  7. SEREVENT [Concomitant]
     Indication: EMPHYSEMA
  8. SPIRIVA [Concomitant]
     Indication: EMPHYSEMA
  9. POTASSIUM [Concomitant]
     Indication: MINERAL SUPPLEMENTATION
  10. DUONEB [Concomitant]
     Indication: EMPHYSEMA
  11. FLONASE [Concomitant]
     Indication: SINUS DISORDER
  12. MERIPEX [Concomitant]
     Indication: RESTLESS LEGS SYNDROME
  13. VICODIN [Concomitant]
     Indication: PAIN
  14. LISINOPRIL [Concomitant]
     Indication: SWELLING
  15. HUMIRA [Suspect]
     Indication: RHEUMATOID ARTHRITIS
     Dates: start: 20111001
  16. ASMANEX TWISTHALER [Concomitant]
     Indication: CHRONIC OBSTRUCTIVE PULMONARY DISEASE
  17. ASPIRIN [Concomitant]
     Indication: CARDIOVASCULAR EVENT PROPHYLAXIS
  18. PRILOSEC [Concomitant]
     Indication: GASTROOESOPHAGEAL REFLUX DISEASE
  19. DUONEB [Concomitant]
     Indication: CHRONIC OBSTRUCTIVE PULMONARY DISEASE
     Dosage: VIA NEBULIZER
  20. SPIRIVA [Concomitant]
     Indication: CHRONIC OBSTRUCTIVE PULMONARY DISEASE
  21. TRASODONE [Concomitant]
     Indication: NIGHTMARE
  22. CELEBREX [Concomitant]
     Indication: INFLAMMATION
  23. MULTI-VITAMIN [Concomitant]
     Indication: VITAMIN SUPPLEMENTATION
     Dosage: HIGH POTENCY

REACTIONS (6)
  - DYSPHAGIA [None]
  - BURNING SENSATION [None]
  - GLOSSODYNIA [None]
  - PHARYNGEAL OEDEMA [None]
  - RESPIRATORY DISORDER [None]
  - CANDIDIASIS [None]
